FAERS Safety Report 23745142 (Version 1)
Quarter: 2024Q2

REPORT INFORMATION
  Report Type: Report from Study
  Country: US (occurrence: US)
  Receive Date: 20240416
  Receipt Date: 20240416
  Transmission Date: 20240716
  Serious: Yes (Other)
  Sender: FDA-Public Use
  Company Number: US-ABBVIE-5667796

PATIENT
  Age: 76 Year
  Sex: Male
  Weight: 113 kg

DRUGS (26)
  1. IMBRUVICA [Suspect]
     Active Substance: IBRUTINIB
     Indication: Chronic lymphocytic leukaemia
     Dosage: 30 TABLET 3 TAKE 1 TABLET BY MOUTH ONCE  DAILY WITH A FULL GLASS OF WATER
     Route: 048
     Dates: start: 20190201
  2. DOXAZOSIN MESYLATE [Concomitant]
     Active Substance: DOXAZOSIN MESYLATE
     Indication: Product used for unknown indication
     Dosage: 100 TABLET 3? 4 MG TABLET
     Route: 048
  3. LOPRESSOR [Concomitant]
     Active Substance: METOPROLOL TARTRATE
     Indication: Product used for unknown indication
     Dosage: 200 TABLET 2? 25 MG TABLET
     Route: 048
  4. PLAVIX [Concomitant]
     Active Substance: CLOPIDOGREL BISULFATE
     Indication: Product used for unknown indication
     Dosage: 100 TABLET 3? 75 MG TABLET
     Route: 048
  5. ERYTHROMYCIN [Concomitant]
     Active Substance: ERYTHROMYCIN
     Indication: Product used for unknown indication
     Dosage: OINT
  6. FENOFIBRATE [Concomitant]
     Active Substance: FENOFIBRATE
     Indication: Product used for unknown indication
     Dosage: 100 TABLET 2? 160 MG TABLET
     Route: 048
  7. POLYETHYLENE GLYCOL [Concomitant]
     Active Substance: POLYETHYLENE GLYCOL
     Indication: Product used for unknown indication
     Dosage: 3350 (MIRALAX PO)
     Route: 048
  8. ALBUTEROL\IPRATROPIUM [Concomitant]
     Active Substance: ALBUTEROL\IPRATROPIUM
     Indication: Product used for unknown indication
     Dosage: 810 LITERS 3? 2.5-0.5 MG/3 ML SOLN
  9. KLONOPIN [Concomitant]
     Active Substance: CLONAZEPAM
     Indication: Anxiety
     Dosage: 90 TABLET 3?0.5 MG TABLET
     Route: 048
  10. RANOLAZINE [Concomitant]
     Active Substance: RANOLAZINE
     Indication: Product used for unknown indication
     Dosage: 200 TABLET 3? (RANEXA) 500 MG 12 HR TABLET
     Route: 048
  11. ACETAMINOPHEN [Concomitant]
     Active Substance: ACETAMINOPHEN
     Indication: Product used for unknown indication
     Dosage: MG TABLET TAKE 1-3 TABLETS BY MOUTH TWICE  DAILY AS NEEDED?(TYLENOL) 500 MG TABLET
     Route: 048
  12. CORTISPORIN [Concomitant]
     Active Substance: BACITRACIN ZINC\HYDROCORTISONE\NEOMYCIN SULFATE\POLYMYXIN B SULFATE
     Indication: Product used for unknown indication
     Dosage: 3.15 ML 0 PLACE 3 DROPS INTO THE RIGHT EAR 3 TIMES DAILY FOR 7 DAYS.
  13. NITROGLYCERIN [Concomitant]
     Active Substance: NITROGLYCERIN
     Indication: Chest pain
     Dosage: 75 TABLET 0 DISSOLVE 1 TAB UNDER THE TONGUE EVERY 5 MIN AS NEEDED FOR.MAX OF 3 TABLETS IN 15 MIN?...
     Route: 060
  14. VITAMIN D3 [Concomitant]
     Active Substance: CHOLECALCIFEROL
     Indication: Product used for unknown indication
     Dosage: 125 MCG (5,000 UNITS) CAPSULE
     Route: 048
  15. PAROXETINE [Concomitant]
     Active Substance: PAROXETINE
     Indication: Product used for unknown indication
     Dosage: 100 TABLET 0? (PAXIL) 40 MG TABLET
     Route: 048
  16. BREO ELLIPTA [Concomitant]
     Active Substance: FLUTICASONE FUROATE\VILANTEROL TRIFENATATE
     Indication: Product used for unknown indication
     Dosage: 180 EACH 3? 100-25 MCG/ACT INHALER
     Route: 048
  17. ALBUTEROL [Concomitant]
     Active Substance: ALBUTEROL
     Indication: Product used for unknown indication
     Dosage: 51G 2  INHALE 2 INHALATIONS BY MOUTH  EVERY 4 HOURS AS NEEDED FOR  WHEEZING?90 MCG/PUFF INHALER
  18. ASPIRIN [Concomitant]
     Active Substance: ASPIRIN
     Indication: Product used for unknown indication
     Dosage: 325 MG TABLET
     Route: 048
  19. ERYTHROMYCIN [Concomitant]
     Active Substance: ERYTHROMYCIN
     Indication: Product used for unknown indication
     Dosage: 3.5 G 0 APPLY THIN RIBBON TO LEFT EYE? OPHTHALMIC OINTMENT
  20. VITAMIN C [Concomitant]
     Active Substance: ASCORBIC ACID
     Indication: Product used for unknown indication
     Dosage: 1000 MG TABLET
     Route: 048
  21. ZYLOPRIM [Concomitant]
     Active Substance: ALLOPURINOL
     Indication: Product used for unknown indication
     Dosage: 100 TABLET 3? 300 MG TABLET
     Route: 048
  22. POLYVINYL ALCOHOL;POVIDONE [Concomitant]
     Indication: Dry eye
     Dosage: PLACE 1 DROP INTO BOTH EYES AS NEEDED FOR DRY EYES.?, PF, (REFRESH) 1.4-0.6% OPHTHALMIC SOLUTION
  23. LIPITOR [Concomitant]
     Active Substance: ATORVASTATIN CALCIUM
     Indication: Product used for unknown indication
     Dosage: 100 TABLET 3?80 MG TABLET
     Route: 048
  24. FEXOFENADINE HYDROCHLORIDE [Concomitant]
     Active Substance: FEXOFENADINE HYDROCHLORIDE
     Indication: Product used for unknown indication
     Dosage: PO
     Route: 048
  25. ZOLPIDEM [Concomitant]
     Active Substance: ZOLPIDEM TARTRATE
     Indication: Product used for unknown indication
     Dosage: 90 TABLET 0?(AMBIEN) 10 MG TABLET
     Route: 048
  26. NITROGLYCERIN [Concomitant]
     Active Substance: NITROGLYCERIN
     Indication: Product used for unknown indication
     Dosage: 100 PATCH 2 REMOVE AT NIGHT FOR 10 TO 12 HOURS AND DISPOSE OF OLD PATCH?0.4 MG/HR PATCH

REACTIONS (9)
  - Abdominal adhesions [Recovering/Resolving]
  - Small intestinal obstruction [Recovering/Resolving]
  - Ear infection [Recovering/Resolving]
  - Cardiac pacemaker insertion [Unknown]
  - Lymphadenopathy [Recovering/Resolving]
  - Eye infection [Unknown]
  - Angina pectoris [Recovered/Resolved]
  - Ear pain [Unknown]
  - Conjunctivitis [Unknown]

NARRATIVE: CASE EVENT DATE: 20200225
